FAERS Safety Report 4985218-1 (Version None)
Quarter: 2006Q2

REPORT INFORMATION
  Report Type: 
  Country: None (occurrence: None)
  Receive Date: 20060427
  Receipt Date: 20050928
  Transmission Date: 20061013
  Serious: Yes (Hospitalization)
  Sender: FDA-Public Use
  Company Number: US-MERCK-0509USA04505

PATIENT
  Age: 73 Year
  Sex: Male
  Weight: 66 kg

DRUGS (9)
  1. VIOXX [Suspect]
     Indication: INTERVERTEBRAL DISC DEGENERATION
     Route: 048
     Dates: start: 20010413, end: 20010401
  2. VIOXX [Suspect]
     Route: 048
     Dates: start: 20010401, end: 20040101
  3. VIOXX [Suspect]
     Indication: OSTEOARTHRITIS
     Route: 048
     Dates: start: 20010413, end: 20010401
  4. VIOXX [Suspect]
     Route: 048
     Dates: start: 20010401, end: 20040101
  5. MEDROL [Concomitant]
     Route: 065
  6. ZYRTEC [Concomitant]
     Route: 065
  7. ASPIRIN [Concomitant]
     Route: 065
  8. LISINOPRIL [Concomitant]
     Route: 065
  9. ZOCOR [Concomitant]
     Route: 048

REACTIONS (15)
  - ANAEMIA [None]
  - ARTHROPATHY [None]
  - ASTHENIA [None]
  - CEREBRAL INFARCTION [None]
  - CEREBROVASCULAR ACCIDENT [None]
  - DEPRESSION [None]
  - ECCHYMOSIS [None]
  - FALL [None]
  - HYPERTENSION [None]
  - LIMB DEFORMITY [None]
  - LUNG NEOPLASM [None]
  - RADICULOPATHY [None]
  - TENDON RUPTURE [None]
  - TRANSIENT ISCHAEMIC ATTACK [None]
  - URINARY INCONTINENCE [None]
